FAERS Safety Report 10733464 (Version 1)
Quarter: 2015Q1

REPORT INFORMATION
  Report Type: Report from Study
  Country: KR (occurrence: KR)
  Receive Date: 20150123
  Receipt Date: 20150123
  Transmission Date: 20150721
  Serious: No
  Sender: FDA-Public Use
  Company Number: PHHY2013KR085308

PATIENT
  Age: 67 Year
  Sex: Male

DRUGS (4)
  1. TASIGNA [Suspect]
     Active Substance: NILOTINIB
     Indication: CHRONIC MYELOID LEUKAEMIA
     Dosage: 800 MG,PER DAY
     Route: 048
     Dates: start: 201205, end: 201206
  2. TASIGNA [Suspect]
     Active Substance: NILOTINIB
     Dosage: 400 MG, PER DAY
     Route: 048
     Dates: start: 201206, end: 20130805
  3. TASIGNA [Suspect]
     Active Substance: NILOTINIB
     Dosage: 600 MG, PER DAY
     Route: 048
     Dates: start: 20130904, end: 20131111
  4. TASIGNA [Suspect]
     Active Substance: NILOTINIB
     Dosage: 600 MG,PER DAY
     Route: 048
     Dates: start: 201401, end: 201408

REACTIONS (2)
  - Platelet count decreased [Unknown]
  - Biopsy bone marrow abnormal [Unknown]

NARRATIVE: CASE EVENT DATE: 20130805
